FAERS Safety Report 7550477-8 (Version None)
Quarter: 2011Q2

REPORT INFORMATION
  Report Type: 
  Country: None (occurrence: None)
  Receive Date: 20110615
  Receipt Date: 20110613
  Transmission Date: 20111010
  Serious: Yes (Other)
  Sender: FDA-Public Use
  Company Number: US-AMGEN-USASP2011000432

PATIENT
  Sex: Female

DRUGS (1)
  1. PROLIA [Suspect]
     Indication: OSTEOPOROSIS POSTMENOPAUSAL

REACTIONS (5)
  - LEUKAEMIA [None]
  - INJECTION SITE ERYTHEMA [None]
  - FUNGAL INFECTION [None]
  - URTICARIA [None]
  - BLOOD COUNT ABNORMAL [None]
